FAERS Safety Report 4832143-2 (Version None)
Quarter: 2005Q4

REPORT INFORMATION
  Report Type: 
  Country: None (occurrence: None)
  Receive Date: 20051118
  Receipt Date: 20051020
  Transmission Date: 20060501
  Serious: Yes (Disabling)
  Sender: FDA-Public Use
  Company Number: FR-MERCK-0510FRA00059

PATIENT
  Age: 82 Year
  Sex: Male
  Weight: 79 kg

DRUGS (2)
  1. ZETIA [Suspect]
     Indication: HYPERCHOLESTEROLAEMIA
     Route: 048
     Dates: start: 20050407, end: 20050802
  2. ZETIA [Suspect]
     Route: 048
     Dates: start: 20050901

REACTIONS (1)
  - TENDON RUPTURE [None]
